FAERS Safety Report 6985869-9 (Version None)
Quarter: 2010Q3

REPORT INFORMATION
  Report Type: 
  Country: None (occurrence: None)
  Receive Date: 20100910
  Receipt Date: 20100820
  Transmission Date: 20110219
  Serious: Yes (Hospitalization)
  Sender: FDA-Public Use
  Company Number: 2010-2883

PATIENT
  Age: 77 Year
  Sex: Male
  Weight: 52 kg

DRUGS (4)
  1. SOMATULINE AUTOGEL INJECTABLE 120MG (LANREOTIDE AUTOGEL) (LANREOTIDE) [Suspect]
     Indication: DIARRHOEA
     Dosage: (120 MG, ONCE DOSE AT EVENT ONSET), SUBCUTANEOUS
     Route: 058
     Dates: start: 20100817, end: 20100817
  2. DUSPATALIN (MEBEVERINE HYDROCHLORIDE) [Concomitant]
  3. RANOMAX (TAMSULOSIN) [Concomitant]
  4. ZYPREXA [Concomitant]

REACTIONS (2)
  - NAUSEA [None]
  - STEATORRHOEA [None]
